FAERS Safety Report 4738586-X (Version None)
Quarter: 2005Q3

REPORT INFORMATION
  Report Type: 
  Country: None (occurrence: None)
  Receive Date: 20050808
  Receipt Date: 20050808
  Transmission Date: 20060218
  Serious: Yes (Hospitalization, Other)
  Sender: FDA-Public Use
  Company Number: None

PATIENT
  Sex: Male
  Weight: 82.3 kg

DRUGS (3)
  1. CISPLATIN [Suspect]
     Indication: NEOPLASM MALIGNANT
     Dosage: SEE IMAGE
     Dates: start: 20050523, end: 20050705
  2. CISPLATIN [Suspect]
     Indication: NEOPLASM MALIGNANT
     Dosage: SEE IMAGE
     Dates: start: 20050705
  3. RADIATION [Suspect]
     Dosage: SEE IMAGE
     Dates: start: 20050705

REACTIONS (6)
  - ABDOMINAL PAIN [None]
  - BLOOD CREATINE ABNORMAL [None]
  - DEHYDRATION [None]
  - NAUSEA [None]
  - PANCREATIC CYST [None]
  - VOMITING [None]
